FAERS Safety Report 10748398 (Version 1)
Quarter: 2015Q1

REPORT INFORMATION
  Report Type: Spontaneous
  Country: US (occurrence: None)
  Receive Date: 20150120
  Receipt Date: 20150120
  Transmission Date: 20150721
  Serious: No
  Sender: FDA-Public Use
  Company Number: AEGR000791

PATIENT
  Age: 65 Year
  Sex: Male

DRUGS (14)
  1. VITAMIN C [Concomitant]
     Active Substance: ASCORBIC ACID
  2. FLAXSEED [Concomitant]
     Active Substance: FLAX SEED
  3. TRIBENZOR (AMLODIPINE BESILATE, HYDROCHLOROTHIAZIDE, OLMESARTAN MEDOXOMIL) [Concomitant]
  4. ASPIRIN (ACETYLSALICYLIC ACID) [Concomitant]
     Active Substance: ASPIRIN
  5. LECITHIN [Concomitant]
     Active Substance: LECITHIN
  6. WELCHOL (COLESEVELAM HYDROCHLORIDE) [Concomitant]
  7. ALPHA LIPOIC ACID (THIOCTIC ACID) [Concomitant]
  8. CRESTOR [Concomitant]
     Active Substance: ROSUVASTATIN CALCIUM
  9. VITAMIN E (TOCOPHERYL ACETATE) [Concomitant]
  10. VIAGRA [Concomitant]
     Active Substance: SILDENAFIL CITRATE
  11. COQ10 (UBIDECARENONE) [Concomitant]
     Active Substance: UBIDECARENONE
  12. NIACIN (NICOTINIC ACID) [Concomitant]
  13. JUXTAPID [Suspect]
     Active Substance: LOMITAPIDE MESYLATE
     Indication: TYPE IIA HYPERLIPIDAEMIA
     Dates: start: 20130411, end: 20140107
  14. VITAMIN D3 [Concomitant]
     Active Substance: CHOLECALCIFEROL

REACTIONS (2)
  - Nausea [None]
  - Diarrhoea [None]

NARRATIVE: CASE EVENT DATE: 201402
